FAERS Safety Report 16963253 (Version 1)
Quarter: 2019Q4

REPORT INFORMATION
  Report Type: Spontaneous
  Country: US (occurrence: US)
  Receive Date: 20191025
  Receipt Date: 20191025
  Transmission Date: 20200122
  Serious: No
  Sender: FDA-Public Use
  Company Number: US-GLAXOSMITHKLINE-US2019AMR190559

PATIENT
  Age: 50 Year
  Sex: Female

DRUGS (1)
  1. NUCALA [Suspect]
     Active Substance: MEPOLIZUMAB
     Indication: PRODUCT USED FOR UNKNOWN INDICATION
     Dosage: UNK (Q4W)
     Route: 065
     Dates: start: 20190924

REACTIONS (5)
  - Nausea [Recovering/Resolving]
  - Fatigue [Recovering/Resolving]
  - Headache [Recovering/Resolving]
  - Muscular weakness [Recovering/Resolving]
  - Dizziness [Recovering/Resolving]

NARRATIVE: CASE EVENT DATE: 201909
